FAERS Safety Report 4487681-1 (Version None)
Quarter: 2004Q4

REPORT INFORMATION
  Report Type: 
  Country: None (occurrence: None)
  Receive Date: 20041025
  Receipt Date: 20041013
  Transmission Date: 20050328
  Serious: Yes (Hospitalization)
  Sender: FDA-Public Use
  Company Number: 2004-120310-NL

PATIENT
  Age: 29 Year
  Sex: Female

DRUGS (1)
  1. DESOGESTREL AND ETHINYL ESTRADIOL [Suspect]
     Indication: DYSMENORRHOEA
     Dosage: DF
     Route: 048
     Dates: start: 20020201, end: 20020601

REACTIONS (17)
  - CHILLS [None]
  - COAGULOPATHY [None]
  - DIPLOPIA [None]
  - EYE PAIN [None]
  - EYE PRURITUS [None]
  - EYE REDNESS [None]
  - EYE SWELLING [None]
  - EYELID PTOSIS [None]
  - HEADACHE [None]
  - IMMUNE SYSTEM DISORDER [None]
  - OEDEMA PERIPHERAL [None]
  - PAIN [None]
  - PYREXIA [None]
  - THERAPY NON-RESPONDER [None]
  - TOLOSA-HUNT SYNDROME [None]
  - TREMOR [None]
  - VASODILATATION [None]
